FAERS Safety Report 17536182 (Version 1)
Quarter: 2020Q1

REPORT INFORMATION
  Report Type: Spontaneous
  Country: DE (occurrence: DE)
  Receive Date: 20200313
  Receipt Date: 20200313
  Transmission Date: 20200409
  Serious: No
  Sender: FDA-Public Use
  Company Number: DE-HORMOSAN PHARMA GMBH-2019-08785

PATIENT
  Sex: Female
  Weight: 109 kg

DRUGS (2)
  1. QUETIAPIN-HORMOSAN 200 MG FILMTABLETTEN [Suspect]
     Active Substance: QUETIAPINE FUMARATE
     Indication: PRODUCT USED FOR UNKNOWN INDICATION
     Dosage: 200 MILLIGRAM, QD
     Route: 065
     Dates: start: 20191217
  2. L-THYROX HEXAL [Suspect]
     Active Substance: LEVOTHYROXINE SODIUM
     Indication: PRODUCT USED FOR UNKNOWN INDICATION
     Dosage: 1 DOSAGE FORM, QD
     Route: 065
     Dates: start: 20151201

REACTIONS (5)
  - Dyspnoea [Unknown]
  - Panic attack [Unknown]
  - Agoraphobia [Unknown]
  - Somnolence [Unknown]
  - Muscle tightness [Unknown]

NARRATIVE: CASE EVENT DATE: 20191217
